FAERS Safety Report 19728968 (Version 1)
Quarter: 2021Q3

REPORT INFORMATION
  Report Type: Spontaneous
  Country: CH (occurrence: IN)
  Receive Date: 20210820
  Receipt Date: 20210820
  Transmission Date: 20211014
  Serious: Yes (Hospitalization, Other)
  Sender: FDA-Public Use
  Company Number: IN-ASTELLAS-2021US031176

PATIENT
  Age: 58 Year
  Sex: Female

DRUGS (2)
  1. CRESEMBA [Suspect]
     Active Substance: ISAVUCONAZONIUM SULFATE
     Indication: MUCORMYCOSIS
     Dosage: 200 MG, THRICE DAILY (FOR 2 DAYS)
     Route: 048
     Dates: start: 20210723, end: 20210724
  2. CRESEMBA [Suspect]
     Active Substance: ISAVUCONAZONIUM SULFATE
     Indication: ASPERGILLUS INFECTION
     Route: 048
     Dates: start: 20210724

REACTIONS (2)
  - Off label use [Unknown]
  - Escherichia urinary tract infection [Unknown]

NARRATIVE: CASE EVENT DATE: 20210723
